FAERS Safety Report 15947830 (Version 1)
Quarter: 2019Q1

REPORT INFORMATION
  Report Type: Report from Study
  Country: US (occurrence: US)
  Receive Date: 20190211
  Receipt Date: 20190211
  Transmission Date: 20190417
  Serious: Yes (Hospitalization)
  Sender: FDA-Public Use
  Company Number: US-ACTELION-A-US2015-117783

PATIENT
  Age: 57 Year
  Sex: Male
  Weight: 75.74 kg

DRUGS (7)
  1. ORENITRAM [Concomitant]
     Active Substance: TREPROSTINIL
  2. ADCIRCA [Concomitant]
     Active Substance: TADALAFIL
  3. REVATIO [Concomitant]
     Active Substance: SILDENAFIL CITRATE
  4. REMODULIN [Concomitant]
     Active Substance: TREPROSTINIL
  5. COUMADIN [Concomitant]
     Active Substance: WARFARIN SODIUM
  6. ADEMPAS [Concomitant]
     Active Substance: RIOCIGUAT
  7. OPSUMIT [Suspect]
     Active Substance: MACITENTAN
     Indication: PULMONARY ARTERIAL HYPERTENSION
     Dosage: 10 MG, QD
     Route: 048
     Dates: start: 20140917

REACTIONS (11)
  - Dyspnoea exertional [Unknown]
  - Therapy change [Unknown]
  - Chest pain [Unknown]
  - Dyspnoea [Unknown]
  - Pain [Unknown]
  - Therapy non-responder [Unknown]
  - Injection site swelling [Unknown]
  - Fatigue [Unknown]
  - Chest discomfort [Unknown]
  - Feeling abnormal [Unknown]
  - Hypotension [Unknown]
